FAERS Safety Report 7180235-8 (Version None)
Quarter: 2010Q4

REPORT INFORMATION
  Report Type: 
  Country: None (occurrence: None)
  Receive Date: 20101221
  Receipt Date: 20101210
  Transmission Date: 20110411
  Serious: Yes (Hospitalization)
  Sender: FDA-Public Use
  Company Number: PHHO2010US18820

PATIENT
  Sex: Female
  Weight: 54.422 kg

DRUGS (1)
  1. AFINITOR [Suspect]
     Indication: MALIGNANT NEOPLASM OF ISLETS OF LANGERHANS
     Dosage: 5 MG
     Route: 048
     Dates: start: 20090728

REACTIONS (3)
  - CONFUSIONAL STATE [None]
  - PYREXIA [None]
  - WHITE BLOOD CELL COUNT INCREASED [None]
